FAERS Safety Report 5521846-2 (Version None)
Quarter: 2007Q4

REPORT INFORMATION
  Report Type: 
  Country: None (occurrence: None)
  Receive Date: 20071120
  Receipt Date: 20071109
  Transmission Date: 20080405
  Serious: Yes (Hospitalization)
  Sender: FDA-Public Use
  Company Number: US-ROCHE-515306

PATIENT
  Age: 88 Year
  Sex: Female

DRUGS (9)
  1. BUMEX [Suspect]
     Indication: FLUID RETENTION
     Route: 065
  2. SYNTHROID [Concomitant]
  3. COREG [Concomitant]
  4. NITROGLYCERIN [Concomitant]
  5. OCUPRESS [Concomitant]
  6. K [Concomitant]
  7. MINITRAN [Concomitant]
  8. ALLOPURINOL [Concomitant]
  9. PROTONIX [Concomitant]

REACTIONS (1)
  - DIVERTICULUM [None]
